FAERS Safety Report 6762451-X (Version None)
Quarter: 2010Q2

REPORT INFORMATION
  Report Type: 
  Country: None (occurrence: None)
  Receive Date: 20100609
  Receipt Date: 20100527
  Transmission Date: 20101027
  Serious: Yes (Other)
  Sender: FDA-Public Use
  Company Number: HU-ELI_LILLY_AND_COMPANY-HU201004007564

PATIENT
  Age: 42 Year
  Sex: Female

DRUGS (2)
  1. ZYPADHERA [Suspect]
     Indication: SCHIZOPHRENIA, PARANOID TYPE
     Dosage: 300 MG, MONTHLY (1/M)
     Route: 030
     Dates: start: 20100401, end: 20100401
  2. ZYPREXA [Suspect]
     Dosage: 10 MG, DAILY (1/D)
     Route: 048

REACTIONS (3)
  - DISCOMFORT [None]
  - DIZZINESS [None]
  - SOMNOLENCE [None]
